FAERS Safety Report 8922818 (Version 1)
Quarter: 2012Q4

REPORT INFORMATION
  Report Type: Spontaneous
  Country: US (occurrence: None)
  Receive Date: 20121115
  Receipt Date: 20121115
  Transmission Date: 20130627
  Serious: Yes (Hospitalization, Other)
  Sender: FDA-Public Use
  Company Number: None

PATIENT
  Age: 25 Year
  Sex: Female
  Weight: 49.9 kg

DRUGS (2)
  1. ALBUTEROL [Suspect]
     Indication: ASTHMA
     Dosage: 2 puffs as needed po
     Dates: start: 19940102, end: 20121114
  2. ALBUTEROL [Suspect]
     Indication: ALLERGY
     Dosage: 2 puffs as needed po
     Dates: start: 19940102, end: 20121114

REACTIONS (1)
  - Anxiety [None]
